FAERS Safety Report 6244109-9 (Version None)
Quarter: 2009Q2

REPORT INFORMATION
  Report Type: 
  Country: None (occurrence: None)
  Receive Date: 20090625
  Receipt Date: 20090619
  Transmission Date: 20091009
  Serious: Yes (Death, Life-Threatening, Hospitalization, Disabling)
  Sender: FDA-Public Use
  Company Number: US-CELGENEUS-163-21880-09041882

PATIENT
  Sex: Male

DRUGS (29)
  1. REVLIMID [Suspect]
     Indication: MULTIPLE MYELOMA
     Route: 048
     Dates: start: 20090301
  2. REVLIMID [Suspect]
     Route: 048
     Dates: start: 20080417
  3. REVLIMID [Suspect]
     Route: 048
     Dates: start: 20080501, end: 20090301
  4. SODIUM CHLORIDE [Concomitant]
     Indication: DRUG USE FOR UNKNOWN INDICATION
     Route: 051
  5. ETOPOSIDE [Concomitant]
     Indication: DRUG USE FOR UNKNOWN INDICATION
     Route: 065
  6. NITROGLYCERIN [Concomitant]
     Indication: CHEST PAIN
     Route: 065
  7. NITROGLYCERIN [Concomitant]
     Route: 051
     Dates: start: 20090301
  8. LOPRESSOR [Concomitant]
     Indication: CHEST PAIN
     Route: 051
     Dates: start: 20090301
  9. FLUID [Concomitant]
     Indication: CHEST PAIN
     Route: 040
     Dates: start: 20090301
  10. DECADRON [Concomitant]
     Indication: MULTIPLE MYELOMA
     Route: 065
     Dates: start: 20090325
  11. DECADRON [Concomitant]
     Route: 065
  12. ALBUTEROL [Concomitant]
     Indication: MULTIPLE MYELOMA
     Route: 065
     Dates: start: 20090301
  13. RED BLOOD CELLS [Concomitant]
     Indication: DRUG USE FOR UNKNOWN INDICATION
     Route: 065
  14. PROCRIT [Concomitant]
     Dosage: 80,000 UNITS
     Route: 065
     Dates: start: 20090330
  15. LANTUS [Concomitant]
     Dosage: 60 UNITS
     Route: 065
  16. HUMALOG [Concomitant]
     Dosage: 10 TO 14 UNITS
     Route: 065
  17. NPH INSULIN [Concomitant]
     Route: 065
  18. ETOPOSIDE [Concomitant]
     Route: 051
     Dates: start: 20090404
  19. ASPIRIN [Concomitant]
     Indication: DRUG USE FOR UNKNOWN INDICATION
     Route: 065
  20. PLAVIX [Concomitant]
     Indication: DRUG USE FOR UNKNOWN INDICATION
     Route: 065
  21. ALLOPURINOL [Concomitant]
     Indication: DRUG USE FOR UNKNOWN INDICATION
     Route: 065
  22. LISINOPRIL [Concomitant]
     Indication: DRUG USE FOR UNKNOWN INDICATION
     Route: 065
  23. ZOLOFT [Concomitant]
     Indication: DRUG USE FOR UNKNOWN INDICATION
     Route: 065
  24. TRAZODONE HCL [Concomitant]
     Indication: INSOMNIA
     Dosage: 200 TO 300MG
     Route: 065
  25. SYNTHROID [Concomitant]
     Indication: DRUG USE FOR UNKNOWN INDICATION
     Route: 065
  26. MULTI-VITAMIN [Concomitant]
     Indication: DRUG USE FOR UNKNOWN INDICATION
     Route: 065
  27. ZOCOR [Concomitant]
     Indication: DRUG USE FOR UNKNOWN INDICATION
     Route: 065
  28. IMDUR [Concomitant]
     Indication: DRUG USE FOR UNKNOWN INDICATION
     Route: 065
  29. COREG [Concomitant]
     Indication: DRUG USE FOR UNKNOWN INDICATION
     Route: 065

REACTIONS (7)
  - ACUTE MYOCARDIAL INFARCTION [None]
  - CORONARY ARTERY OCCLUSION [None]
  - HEPATITIS ACUTE [None]
  - HISTIOCYTOSIS HAEMATOPHAGIC [None]
  - MULTIPLE MYELOMA [None]
  - RASH [None]
  - RENAL FAILURE ACUTE [None]
